FAERS Safety Report 8814151 (Version 1)
Quarter: 2012Q4

REPORT INFORMATION
  Report Type: 
  Country: US (occurrence: US)
  Receive Date: 20120928
  Receipt Date: 20120928
  Transmission Date: 20130627
  Serious: Yes (Life-Threatening, Hospitalization)
  Sender: FDA-Public Use
  Company Number: US-BAYER-2012-097938

PATIENT
  Age: 30 Year
  Sex: Female

DRUGS (1)
  1. DIPHENHYDRAMINE HYDROCHLORIDE [Suspect]
     Dosage: UNK UNK, ONCE

REACTIONS (5)
  - Status epilepticus [None]
  - Unresponsive to stimuli [None]
  - Hypotension [None]
  - Tachycardia [None]
  - Pulseless electrical activity [None]
